FAERS Safety Report 6052564-2 (Version None)
Quarter: 2009Q1

REPORT INFORMATION
  Report Type: 
  Country: None (occurrence: None)
  Receive Date: 20090121
  Receipt Date: 20081031
  Transmission Date: 20090719
  Serious: Yes (Other)
  Sender: FDA-Public Use
  Company Number: 239176J08USA

PATIENT
  Age: 1 Day

DRUGS (3)
  1. REBIF [Suspect]
     Indication: MULTIPLE SCLEROSIS
     Dates: end: 20060901
  2. LABETALOL HCL [Suspect]
     Indication: HYPERTENSION
  3. UNSPECIFIED SLEEP MEDICATION (ALL OTHER THERAPEUTIC PRODUCTS) [Suspect]
     Indication: SOMNOLENCE

REACTIONS (3)
  - MATERNAL DRUGS AFFECTING FOETUS [None]
  - PREGNANCY [None]
  - PREMATURE LABOUR [None]
